FAERS Safety Report 7101792 (Version 3)
Quarter: 2012Q4

REPORT INFORMATION
  Report Type: 
  Country: US (occurrence: None)
  Receive Date: 20090820
  Receipt Date: 20120912
  Transmission Date: 20130627
  Serious: Yes (Other)
  Sender: FDA-Public Use
  Company Number: 2009AP003219

PATIENT
  Age: 75 Year
  Sex: Male

DRUGS (1)
  1. AMIODARONE HYDROCHLORIDE [Suspect]
     Indication: ATRIAL FIBRILLATION
     Dosage: 200 MG;

REACTIONS (4)
  - MUSCULAR WEAKNESS [None]
  - GAIT DISTURBANCE [None]
  - LUMBAR RADICULOPATHY [None]
  - NEUROTOXICITY [None]
